FAERS Safety Report 5957133-8 (Version None)
Quarter: 2008Q4

REPORT INFORMATION
  Report Type: 
  Country: None (occurrence: None)
  Receive Date: 20081118
  Receipt Date: 20081106
  Transmission Date: 20090506
  Serious: Yes (Death)
  Sender: FDA-Public Use
  Company Number: KR-PFIZER INC-2008094321

PATIENT
  Sex: Male

DRUGS (12)
  1. VFEND [Suspect]
     Indication: FUNGAL INFECTION
     Route: 042
     Dates: start: 20070508, end: 20070508
  2. VFEND [Suspect]
     Indication: SYSTEMIC CANDIDA
     Route: 042
     Dates: start: 20070509, end: 20070520
  3. TEICOPLANIN [Concomitant]
     Route: 042
     Dates: start: 20070508, end: 20070509
  4. MEROPEN [Concomitant]
     Route: 042
     Dates: start: 20070508, end: 20070523
  5. METRONIDAZOLE [Concomitant]
     Route: 042
     Dates: start: 20070515, end: 20070523
  6. ALL OTHER THERAPEUTIC PRODUCTS [Concomitant]
     Dates: start: 20070507, end: 20070516
  7. DIGOXIN [Concomitant]
     Route: 042
     Dates: start: 20070427, end: 20070514
  8. BROMHEXINE [Concomitant]
     Route: 042
     Dates: start: 20070508, end: 20070511
  9. ACETYLCYSTEINE [Concomitant]
     Route: 042
     Dates: start: 20070514, end: 20070515
  10. ELASPOL [Concomitant]
     Route: 042
     Dates: start: 20070511, end: 20070520
  11. PANTOPRAZOLE SODIUM [Concomitant]
     Dosage: DAILY DOSE:40MG
     Route: 042
     Dates: start: 20070425, end: 20070523
  12. HYDROCORTISONE SODIUM SUCCINATE [Concomitant]
     Route: 042
     Dates: start: 20070511, end: 20070523

REACTIONS (1)
  - DEATH [None]
